FAERS Safety Report 7073396-2 (Version None)
Quarter: 2010Q4

REPORT INFORMATION
  Report Type: 
  Country: None (occurrence: None)
  Receive Date: 20101029
  Receipt Date: 20100723
  Transmission Date: 20110411
  Serious: No
  Sender: FDA-Public Use
  Company Number: A0864294A

PATIENT
  Age: 78 Year
  Sex: Female

DRUGS (5)
  1. ADVAIR DISKUS 100/50 [Suspect]
     Indication: COUGH
     Dosage: 1PUFF TWICE PER DAY
     Route: 055
  2. ZYRTEC [Concomitant]
  3. HYDROCHLOROTHIAZIDE [Concomitant]
  4. VITAMIN D [Concomitant]
  5. TUSSIONEX [Concomitant]

REACTIONS (3)
  - COUGH [None]
  - PRODUCT QUALITY ISSUE [None]
  - RHINORRHOEA [None]
